FAERS Safety Report 11629307 (Version 1)
Quarter: 2015Q4

REPORT INFORMATION
  Report Type: Spontaneous
  Country: US (occurrence: US)
  Receive Date: 20151014
  Receipt Date: 20151014
  Transmission Date: 20160304
  Serious: No
  Sender: FDA-Public Use
  Company Number: US-PFIZER INC-2015340115

PATIENT
  Age: 62 Year
  Sex: Female
  Weight: 98 kg

DRUGS (1)
  1. NEURONTIN [Suspect]
     Active Substance: GABAPENTIN
     Indication: DIABETIC NEUROPATHY
     Dosage: 300 MG, 1X/DAY (ONE TIME A NIGHT)
     Route: 048
     Dates: start: 2015, end: 2015

REACTIONS (1)
  - Drug ineffective [Unknown]
